FAERS Safety Report 20514701 (Version 1)
Quarter: 2022Q1

REPORT INFORMATION
  Report Type: Spontaneous
  Country: US (occurrence: None)
  Receive Date: 20220224
  Receipt Date: 20220224
  Transmission Date: 20220423
  Serious: Yes (Life-Threatening)
  Sender: FDA-Public Use
  Company Number: None

PATIENT
  Age: 81 Year
  Sex: Male
  Weight: 79.65 kg

DRUGS (7)
  1. XTANDI [Suspect]
     Active Substance: ENZALUTAMIDE
     Indication: Prostate cancer
     Dosage: FREQUENCY : DAILY;?
     Route: 048
     Dates: start: 20210212
  2. FUROSEMIDE [Concomitant]
     Active Substance: FUROSEMIDE
  3. IRBESARTAN [Concomitant]
     Active Substance: IRBESARTAN
  4. METOPROLOL [Concomitant]
     Active Substance: METOPROLOL
  5. nortriptyline 50 mg [Concomitant]
  6. WARFARIN [Concomitant]
     Active Substance: WARFARIN
  7. WELLBUTRIN SR [Concomitant]
     Active Substance: BUPROPION HYDROCHLORIDE

REACTIONS (1)
  - Atrial fibrillation [None]
